FAERS Safety Report 8160703-2 (Version None)
Quarter: 2012Q1

REPORT INFORMATION
  Report Type: 
  Country: None (occurrence: None)
  Receive Date: 20120223
  Receipt Date: 20120213
  Transmission Date: 20120608
  Serious: Yes (Other)
  Sender: FDA-Public Use
  Company Number: PHEH2012US003797

PATIENT
  Sex: Female

DRUGS (7)
  1. LEVAQUIN [Suspect]
     Dosage: 500 MG, BID
  2. SINGULAIR [Concomitant]
     Indication: ASTHMA
     Dosage: 10 MG, DAILY
  3. METOPROLOL TARTRATE [Concomitant]
     Dosage: 25 MG, DAILY
  4. TASIGNA [Suspect]
     Dosage: 800 MG, DAILY
     Route: 048
  5. EFFIENT [Concomitant]
     Dosage: 10 MG, X 1 DAY
  6. ASPIRIN [Concomitant]
     Dosage: 81 MG,1XNIGHT
  7. SIMVASTATIN [Concomitant]
     Dosage: 40 MG, 1XNIGHT

REACTIONS (6)
  - ALOPECIA [None]
  - NAUSEA [None]
  - DIZZINESS [None]
  - ABDOMINAL DISCOMFORT [None]
  - FATIGUE [None]
  - ANGINA PECTORIS [None]
